FAERS Safety Report 11535647 (Version 2)
Quarter: 2015Q4

REPORT INFORMATION
  Report Type: Spontaneous
  Country: US (occurrence: US)
  Receive Date: 20150922
  Receipt Date: 20151001
  Transmission Date: 20160304
  Serious: Yes (Hospitalization, Other)
  Sender: FDA-Public Use
  Company Number: PHEH2015US018203

PATIENT
  Age: 35 Year
  Sex: Female

DRUGS (2)
  1. GILENYA [Suspect]
     Active Substance: FINGOLIMOD HYDROCHLORIDE
     Indication: MULTIPLE SCLEROSIS
     Dosage: 0.5 MG, QD
     Route: 048
     Dates: start: 20150914, end: 20150915
  2. MOTRIN [Concomitant]
     Active Substance: IBUPROFEN
     Indication: PAIN
     Dosage: 400 MG, PRN
     Route: 048

REACTIONS (7)
  - Atrioventricular block [Recovered/Resolved]
  - Heart rate decreased [Unknown]
  - Bundle branch block right [Recovered/Resolved]
  - Electrocardiogram T wave abnormal [Unknown]
  - Atrioventricular block second degree [Recovered/Resolved]
  - Blood pressure decreased [Unknown]
  - Electrocardiogram PR shortened [Unknown]

NARRATIVE: CASE EVENT DATE: 20150914
